FAERS Safety Report 10217554 (Version 1)
Quarter: 2014Q2

REPORT INFORMATION
  Report Type: Spontaneous
  Country: US (occurrence: US)
  Receive Date: 20140604
  Receipt Date: 20140604
  Transmission Date: 20141212
  Serious: No
  Sender: FDA-Public Use
  Company Number: US-009507513-1406USA001997

PATIENT
  Sex: 0

DRUGS (2)
  1. CLARITIN CHEWABLE TABLETS [Suspect]
     Indication: ASTHMA
     Dosage: UNK, UNKNOWN
     Route: 048
  2. CLARITIN CHEWABLE TABLETS [Suspect]
     Indication: HYPERSENSITIVITY

REACTIONS (2)
  - Drug ineffective for unapproved indication [Unknown]
  - Off label use [Unknown]
